FAERS Safety Report 13612175 (Version 14)
Quarter: 2019Q2

REPORT INFORMATION
  Report Type: Spontaneous
  Country: US (occurrence: US)
  Receive Date: 20170605
  Receipt Date: 20190510
  Transmission Date: 20190711
  Serious: No
  Sender: FDA-Public Use
  Company Number: US-INCYTE CORPORATION-2017IN004143

PATIENT

DRUGS (10)
  1. JAKAFI [Suspect]
     Active Substance: RUXOLITINIB
     Dosage: 10 MG, BID
     Route: 048
     Dates: start: 201805
  2. IBUPROFEN. [Concomitant]
     Active Substance: IBUPROFEN
     Indication: PAIN
     Route: 065
  3. PREGABALIN. [Concomitant]
     Active Substance: PREGABALIN
     Indication: PRODUCT USED FOR UNKNOWN INDICATION
     Route: 065
  4. JAKAFI [Suspect]
     Active Substance: RUXOLITINIB
     Indication: POLYCYTHAEMIA VERA
     Dosage: 10 MG, BID
     Route: 048
     Dates: start: 20170523
  5. JAKAFI [Suspect]
     Active Substance: RUXOLITINIB
     Indication: MYELOFIBROSIS
     Dosage: 10 MG, BID
     Route: 048
     Dates: start: 20170523
  6. JAKAFI [Suspect]
     Active Substance: RUXOLITINIB
     Dosage: 10 MG, BID
     Route: 048
  7. ROSUVASTATIN. [Concomitant]
     Active Substance: ROSUVASTATIN
     Indication: PRODUCT USED FOR UNKNOWN INDICATION
     Route: 065
  8. JAKAFI [Suspect]
     Active Substance: RUXOLITINIB
     Dosage: 10 MG, BID
     Route: 048
     Dates: start: 20180518
  9. JAKAFI [Suspect]
     Active Substance: RUXOLITINIB
     Dosage: 10 MG, BID
     Route: 048
     Dates: start: 20180517
  10. ASPIRIN. [Concomitant]
     Active Substance: ASPIRIN
     Indication: PRODUCT USED FOR UNKNOWN INDICATION
     Route: 065

REACTIONS (28)
  - Musculoskeletal pain [Unknown]
  - Dizziness [Unknown]
  - Fatigue [Not Recovered/Not Resolved]
  - Atypical pneumonia [Unknown]
  - Dysgeusia [Unknown]
  - Malaise [Unknown]
  - Myalgia [Unknown]
  - Memory impairment [Unknown]
  - Vomiting [Unknown]
  - Chest pain [Unknown]
  - Feeling abnormal [Unknown]
  - Red blood cell count abnormal [Unknown]
  - Product dose omission [Unknown]
  - Haemoglobin decreased [Unknown]
  - Abdominal discomfort [Recovered/Resolved]
  - Pain [Unknown]
  - Heart rate decreased [Unknown]
  - Breast pain [Unknown]
  - Back pain [Unknown]
  - Anxiety [Unknown]
  - Decreased activity [Unknown]
  - Decreased appetite [Unknown]
  - Depression [Unknown]
  - Labelled drug-food interaction medication error [Unknown]
  - Headache [Unknown]
  - Platelet count increased [Recovered/Resolved]
  - Fibromyalgia [Unknown]
  - Nausea [Unknown]

NARRATIVE: CASE EVENT DATE: 2017
